FAERS Safety Report 12866751 (Version 1)
Quarter: 2016Q4

REPORT INFORMATION
  Report Type: Spontaneous
  Country: IN (occurrence: IN)
  Receive Date: 20161020
  Receipt Date: 20161020
  Transmission Date: 20170207
  Serious: Yes (Other)
  Sender: FDA-Public Use
  Company Number: IN-BAXALTA-2016BLT007405

PATIENT
  Sex: Male
  Weight: 2.08 kg

DRUGS (2)
  1. HUMAN NORMAL IMMUNOGLOBULIN IVIG, TRIPLE VIRALLY REDUCED (TVR)SOLUTION [Suspect]
     Active Substance: HUMAN IMMUNOGLOBULIN G
     Indication: OFF LABEL USE
     Dosage: 0.5 ML/KG/HOUR
     Route: 042
  2. HUMAN NORMAL IMMUNOGLOBULIN IVIG, TRIPLE VIRALLY REDUCED (TVR)SOLUTION [Suspect]
     Active Substance: HUMAN IMMUNOGLOBULIN G
     Indication: RHESUS HAEMOLYTIC DISEASE OF NEWBORN
     Dosage: 1 G/KG (1 ML/KG/HOUR)
     Route: 042

REACTIONS (4)
  - Off label use [None]
  - Bradycardia [None]
  - Apnoea [Recovered/Resolved]
  - Neonatal hypoxia [None]
